FAERS Safety Report 6105870-7 (Version None)
Quarter: 2009Q1

REPORT INFORMATION
  Report Type: 
  Country: None (occurrence: None)
  Receive Date: 20090306
  Receipt Date: 20090304
  Transmission Date: 20090719
  Serious: Yes (Death)
  Sender: FDA-Public Use
  Company Number: US-BRISTOL-MYERS SQUIBB COMPANY-14529572

PATIENT
  Age: 60 Year
  Sex: Male
  Weight: 84 kg

DRUGS (2)
  1. CISPLATIN [Suspect]
     Indication: PHARYNGEAL CANCER STAGE UNSPECIFIED
     Dosage: 100MG/M2 IV ON DAYS 1 AND 22.
     Route: 042
     Dates: start: 20090129, end: 20090129
  2. RADIATION THERAPY [Suspect]
     Indication: PHARYNGEAL CANCER STAGE UNSPECIFIED
     Dosage: TYPE-EXTERNAL BEAM,IMRT;1DF= 5000CGY;FRACTIONS-26;ELAPSED DAYS-22
     Dates: start: 20090227, end: 20090227

REACTIONS (1)
  - DEATH [None]
